FAERS Safety Report 18288623 (Version 1)
Quarter: 2020Q3

REPORT INFORMATION
  Report Type: Spontaneous
  Country: US (occurrence: US)
  Receive Date: 20200921
  Receipt Date: 20200921
  Transmission Date: 20201103
  Serious: Yes (Death, Life-Threatening, Hospitalization)
  Sender: FDA-Public Use
  Company Number: US-STRIDES ARCOLAB LIMITED-2020SP011061

PATIENT
  Age: 50 Year
  Sex: Male

DRUGS (9)
  1. AZATHIOPRINE. [Suspect]
     Active Substance: AZATHIOPRINE
     Indication: IMMUNE-MEDIATED MYOSITIS
     Dosage: 150 MILLIGRAM PER DAY
     Route: 065
  2. SOLU?MEDROL [Suspect]
     Active Substance: METHYLPREDNISOLONE SODIUM SUCCINATE
     Indication: IMMUNE-MEDIATED MYOSITIS
     Dosage: UNK
     Route: 042
  3. SOLU?MEDROL [Suspect]
     Active Substance: METHYLPREDNISOLONE SODIUM SUCCINATE
     Dosage: 1000 MILLIGRAM, QD (5 CONSECUTIVE DAYS)
     Route: 042
  4. UNASYN IM/IV [Concomitant]
     Indication: PRODUCT USED FOR UNKNOWN INDICATION
     Dosage: UNK
     Route: 065
  5. MUCOMYST [Concomitant]
     Active Substance: ACETYLCYSTEINE
     Indication: RESPIRATORY FAILURE
     Dosage: UNK
     Route: 065
  6. MYCOPHENOLATE MOFETIL. [Suspect]
     Active Substance: MYCOPHENOLATE MOFETIL
     Indication: IMMUNE-MEDIATED MYOSITIS
     Dosage: 500 MILLIGRAM, BID
     Route: 065
  7. METHOTREXATE. [Suspect]
     Active Substance: METHOTREXATE
     Indication: IMMUNE-MEDIATED MYOSITIS
     Dosage: 20 MILLIGRAM, ONCE A WEEK
     Route: 065
  8. ALBUTEROL [SALBUTAMOL] [Concomitant]
     Active Substance: ALBUTEROL
     Indication: RESPIRATORY FAILURE
     Dosage: UNK
     Route: 065
  9. PREDNISOLONE. [Suspect]
     Active Substance: PREDNISOLONE
     Indication: IMMUNE-MEDIATED MYOSITIS
     Dosage: UNK; HIGH DOSE
     Route: 048

REACTIONS (8)
  - Lethargy [Unknown]
  - Off label use [Unknown]
  - COVID-19 [Unknown]
  - Drug ineffective [Unknown]
  - General physical health deterioration [Unknown]
  - Cardio-respiratory arrest [Fatal]
  - Hypoxia [Fatal]
  - Blood pressure decreased [Unknown]
